FAERS Safety Report 23027536 (Version 1)
Quarter: 2023Q4

REPORT INFORMATION
  Report Type: Spontaneous
  Country: CN (occurrence: CN)
  Receive Date: 20231004
  Receipt Date: 20231004
  Transmission Date: 20240109
  Serious: Yes (Other)
  Sender: FDA-Public Use
  Company Number: CN-SA-SAC20231003000247

PATIENT
  Age: 54 Year
  Sex: Female

DRUGS (3)
  1. OXALIPLATIN [Suspect]
     Active Substance: OXALIPLATIN
     Indication: Chemotherapy
     Dosage: 180 MG, TOTAL
     Route: 041
     Dates: start: 20230828, end: 20230828
  2. PEGASPARGASE [Suspect]
     Active Substance: PEGASPARGASE
     Indication: Chemotherapy
     Dosage: 3375 U, TOTAL
     Route: 041
     Dates: start: 20230828, end: 20230828
  3. GEMCITABINE HYDROCHLORIDE [Suspect]
     Active Substance: GEMCITABINE HYDROCHLORIDE
     Indication: Chemotherapy
     Dosage: 1.4 G, TOTAL
     Route: 041
     Dates: start: 20230828, end: 20230828

REACTIONS (3)
  - Transient ischaemic attack [Recovered/Resolved]
  - Amaurosis fugax [Recovered/Resolved]
  - Diarrhoea [Recovered/Resolved]

NARRATIVE: CASE EVENT DATE: 20230828
